FAERS Safety Report 12621124 (Version 1)
Quarter: 2016Q3

REPORT INFORMATION
  Report Type: Spontaneous
  Country: US (occurrence: US)
  Receive Date: 20160804
  Receipt Date: 20160804
  Transmission Date: 20161109
  Serious: No
  Sender: FDA-Public Use
  Company Number: US-BIOGEN-2016BI00271587

PATIENT
  Sex: Female

DRUGS (1)
  1. PLEGRIDY [Suspect]
     Active Substance: PEGINTERFERON BETA-1A
     Indication: MULTIPLE SCLEROSIS
     Route: 058
     Dates: start: 20151130, end: 20160130

REACTIONS (5)
  - Needle fatigue [Unknown]
  - Procedural anxiety [Unknown]
  - Drug dose omission [Recovered/Resolved]
  - Device malfunction [Recovered/Resolved]
  - Panic attack [Unknown]
